FAERS Safety Report 4946841-3 (Version None)
Quarter: 2006Q1

REPORT INFORMATION
  Report Type: 
  Country: None (occurrence: None)
  Receive Date: 20060317
  Receipt Date: 20051207
  Transmission Date: 20060701
  Serious: Yes (Other)
  Sender: FDA-Public Use
  Company Number: US-MERCK-0512USA01429

PATIENT
  Age: 46 Year
  Sex: Male

DRUGS (2)
  1. VIOXX [Suspect]
     Indication: LIMB INJURY
     Route: 048
     Dates: start: 20020522
  2. CRESTOR [Concomitant]
     Route: 065

REACTIONS (12)
  - CHEST DISCOMFORT [None]
  - CORONARY ARTERY DISEASE [None]
  - DIZZINESS [None]
  - FATIGUE [None]
  - JOINT INJURY [None]
  - LETHARGY [None]
  - MALAISE [None]
  - MUSCULOSKELETAL DISCOMFORT [None]
  - MYALGIA [None]
  - MYOCARDIAL INFARCTION [None]
  - PAIN IN EXTREMITY [None]
  - REFLUX OESOPHAGITIS [None]
